FAERS Safety Report 7094798-4 (Version None)
Quarter: 2010Q4

REPORT INFORMATION
  Report Type: 
  Country: None (occurrence: None)
  Receive Date: 20101110
  Receipt Date: 20101013
  Transmission Date: 20110411
  Serious: Yes (Other)
  Sender: FDA-Public Use
  Company Number: US-GILEAD-2010-0032551

PATIENT
  Age: 48 Year
  Sex: Male

DRUGS (11)
  1. TRUVADA [Suspect]
     Indication: HIV INFECTION
     Dates: start: 20040901, end: 20090428
  2. VIREAD [Suspect]
     Route: 048
     Dates: start: 20040901, end: 20090428
  3. STAVUDINE [Concomitant]
     Indication: HIV INFECTION
     Dates: end: 20041021
  4. LAMIVUDINE [Concomitant]
     Indication: HIV INFECTION
  5. DIDANOSINE [Concomitant]
     Indication: HIV INFECTION
  6. RITONAVIR [Concomitant]
     Indication: HIV INFECTION
  7. LOPINAVIR [Concomitant]
     Indication: HIV INFECTION
     Dates: start: 20040901, end: 20041021
  8. EFAVIRENZ [Concomitant]
     Indication: HIV INFECTION
  9. EMTRICITABINE [Concomitant]
     Indication: HIV INFECTION
     Dates: start: 20040901, end: 20041021
  10. ATAZANAVIR [Concomitant]
     Indication: HIV INFECTION
     Dates: start: 20041021
  11. ABACAVIR [Concomitant]
     Indication: HIV INFECTION
     Dates: start: 20090428

REACTIONS (3)
  - BONE PAIN [None]
  - FANCONI SYNDROME ACQUIRED [None]
  - OSTEOPOROSIS [None]
